FAERS Safety Report 24812151 (Version 1)
Quarter: 2025Q1

REPORT INFORMATION
  Report Type: Spontaneous
  Country: CN (occurrence: CN)
  Receive Date: 20250106
  Receipt Date: 20250106
  Transmission Date: 20250409
  Serious: Yes (Other)
  Sender: ANI
  Company Number: CN-ANIPHARMA-2024-CN-000495

PATIENT
  Age: 8 Year
  Sex: Female
  Weight: 22 kg

DRUGS (2)
  1. FLUVOXAMINE [Suspect]
     Active Substance: FLUVOXAMINE
     Indication: Anxiety
     Route: 048
     Dates: start: 20241115, end: 20241126
  2. OXAZEPAM [Concomitant]
     Active Substance: OXAZEPAM
     Dates: start: 20241125, end: 20241126

REACTIONS (2)
  - Hepatic function abnormal [Unknown]
  - Product use in unapproved indication [Recovered/Resolved]

NARRATIVE: CASE EVENT DATE: 20241126
